FAERS Safety Report 23515044 (Version 1)
Quarter: 2024Q1

REPORT INFORMATION
  Report Type: Report from Study
  Country: US (occurrence: US)
  Receive Date: 20240212
  Receipt Date: 20240212
  Transmission Date: 20240409
  Serious: Yes (Other)
  Sender: FDA-Public Use
  Company Number: US-ABBVIE-5632231

PATIENT
  Age: 71 Year
  Sex: Female

DRUGS (1)
  1. RINVOQ [Suspect]
     Active Substance: UPADACITINIB
     Indication: Rheumatoid arthritis
     Route: 048
     Dates: start: 20221220, end: 20240103

REACTIONS (3)
  - Chest pain [Recovering/Resolving]
  - Coronary artery bypass [Recovering/Resolving]
  - Exploratory operation [Recovering/Resolving]

NARRATIVE: CASE EVENT DATE: 20240103
